FAERS Safety Report 9918674 (Version 1)
Quarter: 2014Q1

REPORT INFORMATION
  Report Type: Spontaneous
  Country: FR (occurrence: FR)
  Receive Date: 20140224
  Receipt Date: 20140224
  Transmission Date: 20141002
  Serious: Yes (Other)
  Sender: FDA-Public Use
  Company Number: FR-MERCK-1402FRA007816

PATIENT
  Age: 67 Year
  Sex: Female
  Weight: 95 kg

DRUGS (7)
  1. VICTRELIS [Suspect]
     Indication: HEPATITIS C
     Dosage: 800 MG, QD
     Route: 048
     Dates: start: 20110616, end: 20110718
  2. VIRAFERONPEG [Suspect]
     Indication: HEPATITIS C
     Dosage: 150 MICROGRAM, QW
     Dates: start: 20110520, end: 20110718
  3. REBETOL [Suspect]
     Indication: HEPATITIS C
     Dosage: 1200 MG, QD
     Route: 048
     Dates: start: 20110520, end: 20110718
  4. APROVEL [Concomitant]
     Indication: HYPERTENSION
     Dosage: UNK
     Dates: start: 2008, end: 20110712
  5. EPOETIN [Concomitant]
     Indication: ANAEMIA
     Dosage: 30000 IU, UNK
     Dates: start: 20110718
  6. STILNOX [Concomitant]
     Indication: SLEEP DISORDER
     Dosage: UNK
  7. INSULIN [Concomitant]
     Indication: DIABETES MELLITUS
     Dosage: UNK

REACTIONS (1)
  - Neutropenia [Recovered/Resolved]
